FAERS Safety Report 12764631 (Version 1)
Quarter: 2016Q3

REPORT INFORMATION
  Report Type: Spontaneous
  Country: US (occurrence: US)
  Receive Date: 20160920
  Receipt Date: 20160920
  Transmission Date: 20161109
  Serious: No
  Sender: FDA-Public Use
  Company Number: US-LUNDBECK-DKLU2018506

PATIENT
  Sex: Female

DRUGS (1)
  1. NORTHERA [Suspect]
     Active Substance: DROXIDOPA
     Indication: PRODUCT USED FOR UNKNOWN INDICATION
     Dosage: SCHEDULE C, COMPLETE
     Route: 065
     Dates: start: 20160801, end: 20160818

REACTIONS (3)
  - Feeling abnormal [Unknown]
  - Muscular weakness [Unknown]
  - Dizziness [Unknown]
